FAERS Safety Report 10112329 (Version 2)
Quarter: 2014Q2

REPORT INFORMATION
  Report Type: Spontaneous
  Country: US (occurrence: US)
  Receive Date: 20140425
  Receipt Date: 20140513
  Transmission Date: 20141212
  Serious: Yes (Hospitalization, Other)
  Sender: FDA-Public Use
  Company Number: US-PFIZER INC-2014110456

PATIENT
  Age: 76 Year
  Sex: Female
  Weight: 72.11 kg

DRUGS (9)
  1. VFEND [Suspect]
     Indication: ASPERGILLUS INFECTION
     Dosage: 200 MG, 2X/DAY
     Route: 048
     Dates: start: 20140228
  2. ACYCLOVIR [Concomitant]
     Dosage: UNK
  3. ALLOPURINOL [Concomitant]
     Dosage: UNK
  4. ATIVAN [Concomitant]
     Dosage: UNK
  5. LACTULOSE [Concomitant]
     Dosage: UNK
  6. ZOFRAN [Concomitant]
     Indication: NAUSEA
     Dosage: UNK
  7. ZOFRAN [Concomitant]
     Indication: VOMITING
  8. VITAMIN C [Concomitant]
     Dosage: UNK
  9. K-DUR [Concomitant]
     Dosage: UNK

REACTIONS (1)
  - Acute myeloid leukaemia [Not Recovered/Not Resolved]
